FAERS Safety Report 9525890 (Version 1)
Quarter: 2013Q1

REPORT INFORMATION
  Report Type: Spontaneous
  Country: US (occurrence: None)
  Receive Date: 20130314
  Receipt Date: 20130314
  Transmission Date: 20140127
  Serious: Yes (Other)
  Sender: FDA-Public Use
  Company Number: 1212USA010759

PATIENT
  Age: 58 Year
  Sex: Male

DRUGS (5)
  1. PEG-INTRON (PEGINTERFERON ALFA-2B) POWDER FOR INJECTION [Suspect]
     Indication: HEPATITIS C
     Route: 058
     Dates: start: 201207
  2. RIBAVIRIN (RIBAVIRIN) CAPSULE, 200MG [Suspect]
     Indication: HEPATITIS C
     Dates: start: 201207
  3. VICTRELIS (BOCEPREVIR) CAPSULE, 200MG [Suspect]
     Indication: HEPATITIS C
     Dates: start: 2012
  4. LOSARTAN POTASSIUM (LOSARTAN POTASSIUM) [Concomitant]
  5. METOPROLOL (METOPROLOL) [Concomitant]

REACTIONS (1)
  - Anaemia [None]
